FAERS Safety Report 23966948 (Version 1)
Quarter: 2024Q2

REPORT INFORMATION
  Report Type: Spontaneous
  Country: GB (occurrence: GB)
  Receive Date: 20240612
  Receipt Date: 20240612
  Transmission Date: 20240716
  Serious: Yes (Hospitalization, Disabling, Other)
  Sender: FDA-Public Use
  Company Number: None

PATIENT
  Age: 79 Year
  Sex: Female

DRUGS (1)
  1. ALENDRONIC ACID [Suspect]
     Active Substance: ALENDRONIC ACID
     Dosage: 70MG WEEKLY
     Route: 065
     Dates: start: 20111202, end: 20240412

REACTIONS (1)
  - Atypical fracture [Recovered/Resolved with Sequelae]

NARRATIVE: CASE EVENT DATE: 20240412
